FAERS Safety Report 19384840 (Version 4)
Quarter: 2022Q2

REPORT INFORMATION
  Report Type: Report from Study
  Country: JP (occurrence: JP)
  Receive Date: 20210608
  Receipt Date: 20220601
  Transmission Date: 20220721
  Serious: Yes (Hospitalization, Other)
  Sender: FDA-Public Use
  Company Number: JP-JNJFOC-20150310709

PATIENT
  Age: 38 Year
  Sex: Male

DRUGS (31)
  1. INTELENCE [Suspect]
     Active Substance: ETRAVIRINE
     Indication: HIV infection
     Route: 048
     Dates: start: 20130117, end: 20170308
  2. PREZISTA [Suspect]
     Active Substance: DARUNAVIR ETHANOLATE
     Indication: HIV infection
     Route: 048
     Dates: start: 20130117, end: 20170308
  3. PREDNISOLONE [Suspect]
     Active Substance: PREDNISOLONE
     Indication: Immune reconstitution inflammatory syndrome
     Route: 065
     Dates: start: 20130415, end: 20130523
  4. PREDNISOLONE [Suspect]
     Active Substance: PREDNISOLONE
     Indication: Immune reconstitution inflammatory syndrome
     Route: 065
     Dates: start: 20130524, end: 20130625
  5. PREDNISOLONE [Suspect]
     Active Substance: PREDNISOLONE
     Indication: Immune reconstitution inflammatory syndrome
     Route: 065
     Dates: start: 20130626
  6. PREDNISOLONE [Suspect]
     Active Substance: PREDNISOLONE
     Indication: Immune reconstitution inflammatory syndrome
     Dosage: 13-20 MG/DAY
     Route: 065
     Dates: start: 20140401, end: 20160914
  7. PREDNISOLONE [Suspect]
     Active Substance: PREDNISOLONE
     Indication: Immune reconstitution inflammatory syndrome
     Route: 065
     Dates: start: 20160915
  8. EPIVIR [Concomitant]
     Active Substance: LAMIVUDINE
     Indication: HIV infection
     Route: 048
     Dates: start: 20130130, end: 20130626
  9. MARAVIROC [Concomitant]
     Active Substance: MARAVIROC
     Indication: HIV infection
     Route: 048
     Dates: start: 20130130, end: 20140528
  10. NORVIR [Concomitant]
     Active Substance: RITONAVIR
     Indication: HIV infection
     Route: 048
     Dates: start: 20130117, end: 20170308
  11. EPZICOM [Concomitant]
     Active Substance: ABACAVIR SULFATE\LAMIVUDINE
     Indication: HIV infection
     Route: 048
     Dates: start: 20121023, end: 20121024
  12. EPZICOM [Concomitant]
     Active Substance: ABACAVIR SULFATE\LAMIVUDINE
     Indication: HIV infection
     Route: 048
     Dates: start: 20121113, end: 20130116
  13. EPZICOM [Concomitant]
     Active Substance: ABACAVIR SULFATE\LAMIVUDINE
     Indication: HIV infection
     Route: 048
     Dates: start: 20140529, end: 20140625
  14. TIVICAY [Concomitant]
     Active Substance: DOLUTEGRAVIR SODIUM
     Indication: HIV infection
     Route: 048
     Dates: start: 20140626
  15. DESCOVY [Concomitant]
     Active Substance: EMTRICITABINE\TENOFOVIR ALAFENAMIDE FUMARATE
     Indication: HIV infection
     Route: 048
     Dates: start: 20170309
  16. ZITHROMAC:600MG [Concomitant]
     Indication: Disseminated mycobacterium avium complex infection
     Route: 048
     Dates: start: 20130212, end: 20170712
  17. LANSOPRAZOLE [Concomitant]
     Active Substance: LANSOPRAZOLE
     Indication: Cytomegalovirus oesophagitis
     Route: 065
     Dates: start: 20130401
  18. SULFAMETHOXAZOLE\TRIMETHOPRIM [Concomitant]
     Active Substance: SULFAMETHOXAZOLE\TRIMETHOPRIM
     Indication: Antifungal prophylaxis
     Route: 048
     Dates: start: 20130401, end: 20160914
  19. SULFAMETHOXAZOLE\TRIMETHOPRIM [Concomitant]
     Active Substance: SULFAMETHOXAZOLE\TRIMETHOPRIM
     Indication: Prophylaxis
     Dosage: UNKNOWN
     Route: 048
     Dates: start: 20170614, end: 20171206
  20. EBUTOL [Concomitant]
     Active Substance: ETHAMBUTOL HYDROCHLORIDE
     Indication: Disseminated mycobacterium avium complex infection
     Route: 048
     Dates: start: 20130401, end: 20190320
  21. LEVOFLOXACIN HEMIHYDRATE [Concomitant]
     Active Substance: LEVOFLOXACIN
     Indication: Disseminated mycobacterium avium complex infection
     Route: 065
     Dates: start: 20130401, end: 20160622
  22. ACYCLOVIR [Concomitant]
     Active Substance: ACYCLOVIR
     Indication: Varicella
     Route: 065
     Dates: start: 20151003, end: 20151006
  23. VALACYCLOVIR HYDROCHLORIDE [Concomitant]
     Active Substance: VALACYCLOVIR HYDROCHLORIDE
     Indication: Varicella
     Route: 048
     Dates: start: 20151007, end: 20151012
  24. CLARITHROMYCIN [Concomitant]
     Active Substance: CLARITHROMYCIN
     Indication: Disseminated mycobacterium avium complex infection
     Dosage: UNKNOWN
     Route: 048
     Dates: start: 20170713
  25. LEVOFLOXACIN [Concomitant]
     Active Substance: LEVOFLOXACIN
     Indication: Disseminated mycobacterium avium complex infection
     Dosage: UNKNOWN
     Route: 065
     Dates: start: 20170401, end: 20181128
  26. LEVOFLOXACIN [Concomitant]
     Active Substance: LEVOFLOXACIN
     Indication: Disseminated mycobacterium avium complex infection
     Dosage: UNKNOWN
     Route: 065
     Dates: start: 20191106
  27. LANSOPRAZOLE [Concomitant]
     Active Substance: LANSOPRAZOLE
     Indication: Prophylaxis
     Dosage: UNKNOWN
     Route: 065
     Dates: start: 20170401
  28. ATORVASTATIN [Concomitant]
     Active Substance: ATORVASTATIN
     Indication: Dyslipidaemia
     Dosage: DOSE UNKNOWN
     Route: 048
     Dates: start: 20210120, end: 20210609
  29. SIVEXTRO [Concomitant]
     Active Substance: TEDIZOLID PHOSPHATE
     Indication: Cellulitis
     Dosage: DOSE UNKNOWN
     Route: 065
     Dates: start: 20210326, end: 20210414
  30. SIVEXTRO [Concomitant]
     Active Substance: TEDIZOLID PHOSPHATE
     Dosage: DOSE UNKNOWN
     Route: 065
     Dates: start: 20210408
  31. URSODIOL [Concomitant]
     Active Substance: URSODIOL
     Indication: Liver disorder
     Dosage: DOSE UNKNOWN
     Route: 048
     Dates: start: 20210818

REACTIONS (5)
  - Immune reconstitution inflammatory syndrome [Not Recovered/Not Resolved]
  - Protein-losing gastroenteropathy [Not Recovered/Not Resolved]
  - White blood cell count increased [Recovered/Resolved]
  - Hypoalbuminaemia [Not Recovered/Not Resolved]
  - Varicella [Recovered/Resolved]

NARRATIVE: CASE EVENT DATE: 20130130
